FAERS Safety Report 7116796-4 (Version None)
Quarter: 2010Q4

REPORT INFORMATION
  Report Type: 
  Country: None (occurrence: None)
  Receive Date: 20101115
  Receipt Date: 20101107
  Transmission Date: 20110411
  Serious: Yes (Other)
  Sender: FDA-Public Use
  Company Number: DSA_03291_2010

PATIENT
  Age: 65 Year
  Sex: Female

DRUGS (4)
  1. VANIQA [Suspect]
     Indication: HAIR GROWTH ABNORMAL
     Dosage: DF, TOPICAL
     Route: 061
     Dates: start: 20101001, end: 20101101
  2. GLUMETZA [Concomitant]
  3. COZAAR [Concomitant]
  4. ZOCOR [Concomitant]

REACTIONS (6)
  - ASTHENIA [None]
  - CARDIAC FLUTTER [None]
  - DIZZINESS [None]
  - FATIGUE [None]
  - HAIR GROWTH ABNORMAL [None]
  - NAUSEA [None]
